FAERS Safety Report 8797888 (Version 3)
Quarter: 2013Q4

REPORT INFORMATION
  Report Type: Spontaneous
  Country: IE (occurrence: IE)
  Receive Date: 20120919
  Receipt Date: 20131025
  Transmission Date: 20140711
  Serious: Yes (Disabling)
  Sender: FDA-Public Use
  Company Number: IE-ACTELION-A-CH2012-71333

PATIENT
  Age: 48 Year
  Sex: Male

DRUGS (4)
  1. TRACLEER [Suspect]
     Indication: PRODUCT USED FOR UNKNOWN INDICATION
     Dosage: 62.5 MG, BID
     Route: 048
     Dates: start: 201010
  2. TRACLEER [Suspect]
     Dosage: 125 MG, UNK
     Route: 048
  3. ADALAT [Concomitant]
  4. SYMBICORT [Concomitant]

REACTIONS (1)
  - Erectile dysfunction [Not Recovered/Not Resolved]
